FAERS Safety Report 9282918 (Version 1)
Quarter: 2013Q2

REPORT INFORMATION
  Report Type: Spontaneous
  Country: FR (occurrence: FR)
  Receive Date: 20130510
  Receipt Date: 20130510
  Transmission Date: 20140414
  Serious: Yes (Hospitalization)
  Sender: FDA-Public Use
  Company Number: FR-JNJFOC-20130501452

PATIENT
  Age: 19 Year
  Sex: Female

DRUGS (5)
  1. XARELTO [Suspect]
     Indication: FACTOR V LEIDEN MUTATION
     Route: 048
     Dates: start: 20130213, end: 20130302
  2. PREVISCAN (FLUINDIONE) [Concomitant]
     Route: 065
  3. URBANYL [Concomitant]
     Route: 065
  4. HEPARIN [Concomitant]
     Route: 065
  5. PERFALGAN [Concomitant]
     Route: 065

REACTIONS (1)
  - Grand mal convulsion [Recovered/Resolved]
